FAERS Safety Report 10168210 (Version 1)
Quarter: 2014Q2

REPORT INFORMATION
  Report Type: Spontaneous
  Country: NL (occurrence: NL)
  Receive Date: 20140512
  Receipt Date: 20140512
  Transmission Date: 20141212
  Serious: Yes (Death)
  Sender: FDA-Public Use
  Company Number: NL-PFIZER INC-2014128626

PATIENT
  Age: 63 Year
  Sex: Female
  Weight: 65 kg

DRUGS (1)
  1. VENLAFAXINE HCL [Suspect]
     Indication: TENSION
     Dosage: 75 MG, 1X/DAY
     Dates: start: 199001

REACTIONS (1)
  - Brain neoplasm [Fatal]
